FAERS Safety Report 7604076-X (Version None)
Quarter: 2011Q3

REPORT INFORMATION
  Report Type: 
  Country: None (occurrence: None)
  Receive Date: 20110712
  Receipt Date: 20110704
  Transmission Date: 20111222
  Serious: Yes (Hospitalization)
  Sender: FDA-Public Use
  Company Number: FR-ASTRAZENECA-2011SE40471

PATIENT
  Age: 23272 Day
  Sex: Female

DRUGS (2)
  1. NEXIUM [Suspect]
     Route: 048
     Dates: end: 20110307
  2. VOLTAREN [Suspect]
     Indication: SCIATICA
     Route: 048
     Dates: start: 20110217, end: 20110307

REACTIONS (1)
  - EOSINOPHILIA [None]
